FAERS Safety Report 19719081 (Version 1)
Quarter: 2021Q3

REPORT INFORMATION
  Report Type: Spontaneous
  Country: US (occurrence: US)
  Receive Date: 20210818
  Receipt Date: 20210818
  Transmission Date: 20211014
  Serious: No
  Sender: FDA-Public Use
  Company Number: None

PATIENT
  Age: 47 Year
  Sex: Male
  Weight: 99.79 kg

DRUGS (1)
  1. TREMFYA [Suspect]
     Active Substance: GUSELKUMAB
     Indication: PSORIASIS
     Dosage: OTHER FREQUENCY:WEEK 0 AND WEEK 4; AS DIRECTED?
     Route: 058
     Dates: start: 202005

REACTIONS (2)
  - Tooth extraction [None]
  - Infection [None]
